FAERS Safety Report 24684793 (Version 4)
Quarter: 2025Q2

REPORT INFORMATION
  Report Type: Report from Study
  Country: US (occurrence: US)
  Receive Date: 20241202
  Receipt Date: 20250612
  Transmission Date: 20250716
  Serious: Yes (Hospitalization, Other)
  Sender: SUNOVION
  Company Number: US-SMPA-2024SPA005510

PATIENT

DRUGS (19)
  1. ORGOVYX [Suspect]
     Active Substance: RELUGOLIX
     Indication: Prostate cancer
     Route: 048
  2. ORGOVYX [Suspect]
     Active Substance: RELUGOLIX
     Dosage: 120 MG, QD
     Route: 048
     Dates: start: 20241029
  3. GEMTESA [Concomitant]
     Active Substance: VIBEGRON
     Indication: Hypertonic bladder
     Dosage: 75 MG, QD
     Route: 048
  4. HYDROXYCHLOROQUINE [Concomitant]
     Active Substance: HYDROXYCHLOROQUINE
     Dosage: 200 MG, QD
     Route: 048
  5. HYOSCYAMINE SULFATE [Concomitant]
     Active Substance: HYOSCYAMINE SULFATE
  6. LOSARTAN POTASSIUM [Concomitant]
     Active Substance: LOSARTAN POTASSIUM
     Dosage: 25 MG, QD
     Route: 065
  7. METHOCARBAMOL [Concomitant]
     Active Substance: METHOCARBAMOL
     Dosage: 500 MG, QD
  8. NORCO [Concomitant]
     Active Substance: ACETAMINOPHEN\HYDROCODONE BITARTRATE
     Dosage: 325 MG, QD
     Route: 065
  9. ONDANSETRON [Concomitant]
     Active Substance: ONDANSETRON
  10. OXYBUTYNIN CHLORIDE [Concomitant]
     Active Substance: OXYBUTYNIN CHLORIDE
     Dosage: 10 MG, QD
     Route: 065
  11. PANTOPRAZOLE [Concomitant]
     Active Substance: PANTOPRAZOLE
     Route: 065
  12. MINERALS\VITAMINS [Concomitant]
     Active Substance: MINERALS\VITAMINS
     Route: 065
  13. ProMod [Concomitant]
     Route: 065
  14. SENNA LEAF [Concomitant]
     Active Substance: SENNA LEAF
     Route: 065
  15. ATORVASTATIN [Concomitant]
     Active Substance: ATORVASTATIN
     Indication: Cerebral infarction
     Dosage: 40 MG, QD
     Dates: start: 20240423
  16. ASPIRIN [Concomitant]
     Active Substance: ASPIRIN
     Indication: Blood pressure measurement
     Dosage: 81 MG, QD
     Route: 065
     Dates: start: 20240423
  17. ASCORBIC ACID [Concomitant]
     Active Substance: ASCORBIC ACID
     Indication: Decubitus ulcer
     Dosage: 500 MG, QD
     Route: 065
     Dates: start: 20240425
  18. CLARITIN [Concomitant]
     Active Substance: LORATADINE
     Indication: Hypersensitivity
     Dosage: UNK, QD
     Route: 065
     Dates: start: 20240501
  19. ESCITALOPRAM [Concomitant]
     Active Substance: ESCITALOPRAM OXALATE
     Indication: Cerebral infarction
     Dosage: 5 MG, QD
     Route: 065
     Dates: start: 20240716

REACTIONS (6)
  - Urostomy [Unknown]
  - COVID-19 [Unknown]
  - Urinary tract infection [Unknown]
  - Bladder disorder [Unknown]
  - Bladder catheter replacement [Unknown]
  - Therapy interrupted [Unknown]
